FAERS Safety Report 23874552 (Version 1)
Quarter: 2024Q2

REPORT INFORMATION
  Report Type: Spontaneous
  Country: BE (occurrence: BE)
  Receive Date: 20240520
  Receipt Date: 20240520
  Transmission Date: 20240715
  Serious: Yes (Other)
  Sender: FDA-Public Use
  Company Number: None

PATIENT
  Age: 26 Year
  Sex: Female

DRUGS (1)
  1. OZEMPIC [Suspect]
     Active Substance: SEMAGLUTIDE
     Indication: Weight control
     Dosage: 1 DF QM (0.25MG) (1 PER MONTH PATIENT USED OZEMPIC TO LOSE WEIGHT, BECAME PREGNANT UNPLANNED, LAST D
     Route: 003

REACTIONS (4)
  - Unintended pregnancy [Recovered/Resolved with Sequelae]
  - Foetal death [Unknown]
  - Off label use [Recovered/Resolved with Sequelae]
  - Maternal exposure during pregnancy [Unknown]

NARRATIVE: CASE EVENT DATE: 20240419
